FAERS Safety Report 25444698 (Version 1)
Quarter: 2025Q2

REPORT INFORMATION
  Report Type: Spontaneous
  Country: US (occurrence: US)
  Receive Date: 20250617
  Receipt Date: 20250617
  Transmission Date: 20250717
  Serious: Yes (Hospitalization)
  Sender: MACLEODS
  Company Number: US-MACLEODS PHARMA-MAC2025053543

PATIENT

DRUGS (1)
  1. HYDRALAZINE [Suspect]
     Active Substance: HYDRALAZINE HYDROCHLORIDE
     Indication: Product used for unknown indication
     Dosage: 150 MG
     Route: 065

REACTIONS (5)
  - Autoimmune disorder [Unknown]
  - Haematuria [Recovered/Resolved]
  - Lupus-like syndrome [Recovered/Resolved]
  - Cutaneous vasculitis [Recovered/Resolved]
  - Gangrene [Recovered/Resolved]
